FAERS Safety Report 18029488 (Version 1)
Quarter: 2020Q3

REPORT INFORMATION
  Report Type: Spontaneous
  Country: US (occurrence: US)
  Receive Date: 20200715
  Receipt Date: 20200715
  Transmission Date: 20201103
  Serious: Yes (Hospitalization, Other)
  Sender: FDA-Public Use
  Company Number: None

PATIENT
  Age: 73 Year
  Sex: Female

DRUGS (1)
  1. DOFETILIDE 500 MCG [Suspect]
     Active Substance: DOFETILIDE
     Route: 048
     Dates: start: 20180212

REACTIONS (2)
  - Surgery [None]
  - Cardiac pacemaker insertion [None]

NARRATIVE: CASE EVENT DATE: 20200626
